FAERS Safety Report 6307605-1 (Version None)
Quarter: 2009Q3

REPORT INFORMATION
  Report Type: 
  Country: None (occurrence: None)
  Receive Date: 20090813
  Receipt Date: 20090731
  Transmission Date: 20100115
  Serious: Yes (Other)
  Sender: FDA-Public Use
  Company Number: PHHY2009BR33648

PATIENT
  Age: 57 Year
  Sex: Male

DRUGS (2)
  1. ZOLEDRONIC ACID [Suspect]
     Dosage: 4 MG EVERY 4 WEEKS
     Route: 042
  2. INTERFERON [Concomitant]
     Dosage: 5 MU/M2 , THREE TIMES A WEEK

REACTIONS (5)
  - BONE LESION [None]
  - DENTAL CARE [None]
  - OSTEONECROSIS [None]
  - PURULENT DISCHARGE [None]
  - TOOTHACHE [None]
